FAERS Safety Report 4926723-3 (Version None)
Quarter: 2006Q1

REPORT INFORMATION
  Report Type: 
  Country: None (occurrence: None)
  Receive Date: 20060228
  Receipt Date: 20050527
  Transmission Date: 20060701
  Serious: No
  Sender: FDA-Public Use
  Company Number: 20050106508

PATIENT
  Age: 34 Year
  Sex: Female
  Weight: 136.4 kg

DRUGS (5)
  1. LAMICTAL [Suspect]
     Indication: DRUG USE FOR UNKNOWN INDICATION
     Route: 048
  2. TYLENOL (CAPLET) [Suspect]
     Indication: ILL-DEFINED DISORDER
     Route: 065
     Dates: start: 20050120
  3. CELEXA [Suspect]
     Indication: DRUG USE FOR UNKNOWN INDICATION
     Route: 065
  4. KLONOPIN [Suspect]
     Indication: DRUG USE FOR UNKNOWN INDICATION
     Route: 065
  5. SEROQUEL [Suspect]
     Indication: DRUG USE FOR UNKNOWN INDICATION
     Route: 065

REACTIONS (2)
  - DIZZINESS [None]
  - DRUG INTERACTION [None]
